FAERS Safety Report 5199194-2 (Version None)
Quarter: 2007Q1

REPORT INFORMATION
  Report Type: 
  Country: None (occurrence: None)
  Receive Date: 20070104
  Receipt Date: 20061228
  Transmission Date: 20070707
  Serious: Yes (Other)
  Sender: FDA-Public Use
  Company Number: DE-PFIZER INC-2006145415

PATIENT
  Sex: Female

DRUGS (4)
  1. NEURONTIN [Suspect]
     Indication: SCIATICA
     Route: 048
     Dates: start: 20061001, end: 20061119
  2. KATADOLON [Suspect]
     Indication: SCIATICA
     Route: 048
     Dates: start: 20061001, end: 20061117
  3. VALORON N [Concomitant]
  4. MIRTAZAPINE [Concomitant]

REACTIONS (1)
  - HEPATIC ENZYME INCREASED [None]
